FAERS Safety Report 8025785-7 (Version None)
Quarter: 2012Q1

REPORT INFORMATION
  Report Type: 
  Country: None (occurrence: None)
  Receive Date: 20120105
  Receipt Date: 20110816
  Transmission Date: 20120608
  Serious: No
  Sender: FDA-Public Use
  Company Number: US-ABBOTT-11P-163-0847782-00

PATIENT
  Sex: Male

DRUGS (4)
  1. SYNTHROID [Suspect]
     Dosage: TOTAL DOSE REDUCED TO 200MCG
  2. SYNTHROID [Suspect]
     Indication: HYPOTHYROIDISM
     Dosage: 175MCG+50MCG TO TOTAL 225MCG DAILY
  3. SYNTHROID [Suspect]
     Indication: HYPOTHYROIDISM
     Dosage: 175MCG+50MCG TO TOTAL 225MCG DAILY
  4. SYNTHROID [Suspect]
     Dosage: TOTAL DOSE REDUCED TO 200MCG

REACTIONS (1)
  - CHEST DISCOMFORT [None]
